FAERS Safety Report 9494264 (Version 1)
Quarter: 2013Q3

REPORT INFORMATION
  Report Type: Spontaneous
  Country: AT (occurrence: AT)
  Receive Date: 20130903
  Receipt Date: 20130903
  Transmission Date: 20140515
  Serious: Yes (Life-Threatening, Hospitalization, Disabling)
  Sender: FDA-Public Use
  Company Number: AT-ROCHE-1265371

PATIENT
  Age: 37 Year
  Sex: Female
  Weight: 51.5 kg

DRUGS (2)
  1. MABTHERA [Suspect]
     Indication: RHEUMATOID ARTHRITIS
     Dosage: 4 CYCLES OVER 15 MONTHS
     Route: 042
  2. ACEMETACIN [Concomitant]

REACTIONS (9)
  - Cystitis [Recovered/Resolved with Sequelae]
  - Pain [Recovered/Resolved with Sequelae]
  - Toxic epidermal necrolysis [Recovered/Resolved with Sequelae]
  - Vaginal infection [Recovered/Resolved with Sequelae]
  - Haematuria [Recovered/Resolved with Sequelae]
  - Dysuria [Recovered/Resolved with Sequelae]
  - Laparotomy [Unknown]
  - Abscess sterile [Recovered/Resolved with Sequelae]
  - Reduced bladder capacity [Recovered/Resolved with Sequelae]
